FAERS Safety Report 6094758-6 (Version None)
Quarter: 2009Q1

REPORT INFORMATION
  Report Type: 
  Country: None (occurrence: None)
  Receive Date: 20090225
  Receipt Date: 20090211
  Transmission Date: 20090719
  Serious: Yes (Hospitalization)
  Sender: FDA-Public Use
  Company Number: 2009AL000824

PATIENT
  Age: 35 Year
  Sex: Female

DRUGS (3)
  1. FLUOXETINE ORAL SOLUTION USP, [Suspect]
     Indication: DEPRESSION
     Dosage: 40 MG,
  2. LAMOTRIGINE [Concomitant]
  3. VITAMIN TAB [Concomitant]

REACTIONS (7)
  - BIPOLAR DISORDER [None]
  - CONFUSIONAL STATE [None]
  - DELIRIUM [None]
  - DRUG INTERACTION [None]
  - HALLUCINATIONS, MIXED [None]
  - INTENTIONAL OVERDOSE [None]
  - THERAPY REGIMEN CHANGED [None]
